FAERS Safety Report 6907838-7 (Version None)
Quarter: 2010Q3

REPORT INFORMATION
  Report Type: 
  Country: None (occurrence: None)
  Receive Date: 20100712
  Receipt Date: 20100401
  Transmission Date: 20110219
  Serious: No
  Sender: FDA-Public Use
  Company Number: US-000126

PATIENT
  Sex: Female
  Weight: 73.6 kg

DRUGS (6)
  1. KUVAN [Suspect]
     Indication: PHENYLKETONURIA
     Dosage: (20 MG/KG QD ORAL)
     Route: 048
     Dates: start: 20080417
  2. CAMILA [Concomitant]
  3. PRENATAL VITAMINS /01549301/ [Concomitant]
  4. PHENYLADE DRINK MIX [Concomitant]
  5. TYLENOL /0002001/ [Concomitant]
  6. BENADRYL [Concomitant]

REACTIONS (1)
  - DRUG EXPOSURE DURING PREGNANCY [None]
